FAERS Safety Report 6102140-8 (Version None)
Quarter: 2009Q1

REPORT INFORMATION
  Report Type: 
  Country: None (occurrence: None)
  Receive Date: 20090304
  Receipt Date: 20090301
  Transmission Date: 20090719
  Serious: Yes (Hospitalization)
  Sender: FDA-Public Use
  Company Number: US-MERCK-0903USA00138

PATIENT
  Age: 72 Year
  Sex: Female
  Weight: 60 kg

DRUGS (7)
  1. JANUVIA [Suspect]
     Indication: BLOOD GLUCOSE INCREASED
     Route: 048
     Dates: start: 20090212
  2. LEVOTHYROXINE SODIUM [Concomitant]
     Route: 065
  3. LISINOPRIL [Concomitant]
     Route: 065
  4. ATENOLOL [Concomitant]
     Route: 065
  5. GLIPIZIDE [Concomitant]
     Route: 065
  6. SIMVASTATIN [Concomitant]
     Route: 065
  7. METFORMIN [Concomitant]
     Route: 065

REACTIONS (2)
  - HEADACHE [None]
  - LOCAL SWELLING [None]
